FAERS Safety Report 6966628-X (Version None)
Quarter: 2010Q3

REPORT INFORMATION
  Report Type: 
  Country: None (occurrence: None)
  Receive Date: 20100906
  Receipt Date: 20100830
  Transmission Date: 20110219
  Serious: No
  Sender: FDA-Public Use
  Company Number: US-BIOGENIDEC-2010BI030480

PATIENT
  Age: 39 Year
  Sex: Female

DRUGS (1)
  1. TYSABRI [Suspect]
     Indication: MULTIPLE SCLEROSIS
     Route: 042
     Dates: start: 20100803

REACTIONS (7)
  - BLINDNESS [None]
  - CHEST PAIN [None]
  - CHILLS [None]
  - CRYING [None]
  - HEADACHE [None]
  - PYREXIA [None]
  - VISUAL IMPAIRMENT [None]
